FAERS Safety Report 6371842-0 (Version None)
Quarter: 2009Q3

REPORT INFORMATION
  Report Type: 
  Country: None (occurrence: None)
  Receive Date: 20090923
  Receipt Date: 20090914
  Transmission Date: 20100115
  Serious: Yes (Hospitalization, Other)
  Sender: FDA-Public Use
  Company Number: PHHY2009FR39655

PATIENT
  Sex: Female

DRUGS (9)
  1. EXELON [Suspect]
     Indication: DEMENTIA ALZHEIMER'S TYPE
     Dosage: UNK
     Dates: start: 20090601, end: 20090801
  2. PREVISCAN [Suspect]
     Dosage: 0.75 DF, QD
  3. ALDACTAZINE [Suspect]
     Dosage: 1 DF, QD
  4. VASTAREL [Suspect]
     Dosage: 2 DF, QD
  5. ZOCOR [Suspect]
     Dosage: 20 MG, QD
     Dates: start: 20060101
  6. METHOTREXATE SODIUM [Suspect]
     Dosage: 4 DF, QW
     Dates: start: 20060101
  7. FOSAMAX [Suspect]
     Dosage: 1 DF, QW
  8. SOLUPRED [Suspect]
     Dosage: 7.5 MG, QD
  9. STABLON [Suspect]
     Dosage: UNK
     Dates: start: 20090601, end: 20090801

REACTIONS (7)
  - DYSPHAGIA [None]
  - INFLAMMATION [None]
  - INTERNATIONAL NORMALISED RATIO INCREASED [None]
  - ORAL MUCOSA EROSION [None]
  - ORAL PAIN [None]
  - OROPHARYNGEAL PAIN [None]
  - RECTAL HAEMORRHAGE [None]
